FAERS Safety Report 5468156-X (Version None)
Quarter: 2007Q3

REPORT INFORMATION
  Report Type: 
  Country: None (occurrence: None)
  Receive Date: 20070926
  Receipt Date: 20070913
  Transmission Date: 20080115
  Serious: Yes (Hospitalization)
  Sender: FDA-Public Use
  Company Number: US-ELI_LILLY_AND_COMPANY-US200708005359

PATIENT
  Age: 64 Year
  Sex: Female

DRUGS (4)
  1. FORTEO [Suspect]
     Indication: OSTEOPOROSIS
     Dosage: UNK, UNK
     Dates: start: 20070613, end: 20070806
  2. FORTEO [Suspect]
     Dates: start: 20070801
  3. ALTACE [Concomitant]
     Dosage: 10 MG, DAILY (1/D)
  4. ASPIRIN [Concomitant]
     Dosage: 81 MG, DAILY (1/D)

REACTIONS (3)
  - ABDOMINAL DISTENSION [None]
  - CHEST DISCOMFORT [None]
  - DYSPNOEA [None]
